FAERS Safety Report 10904825 (Version 2)
Quarter: 2015Q3

REPORT INFORMATION
  Report Type: Spontaneous
  Country: US (occurrence: US)
  Receive Date: 20150311
  Receipt Date: 20150803
  Transmission Date: 20151125
  Serious: Yes (Hospitalization, Other)
  Sender: FDA-Public Use
  Company Number: US-PFIZER INC-2015082491

PATIENT
  Sex: Female

DRUGS (1)
  1. DEPO-PROVERA [Suspect]
     Active Substance: MEDROXYPROGESTERONE ACETATE
     Indication: CONTRACEPTION
     Dosage: ^150CC INTRACUTANEOUS INJECTION^, UNK, AS DIRECTED
     Dates: start: 20120725

REACTIONS (9)
  - Iliac artery embolism [Unknown]
  - Peripheral coldness [Unknown]
  - Leg amputation [Unknown]
  - Compartment syndrome [Unknown]
  - Skin discolouration [Unknown]
  - Skin discolouration [Unknown]
  - Hypoaesthesia [Unknown]
  - Peripheral ischaemia [Unknown]
  - Hypoaesthesia [Unknown]

NARRATIVE: CASE EVENT DATE: 2012
